FAERS Safety Report 7761323-1 (Version None)
Quarter: 2011Q3

REPORT INFORMATION
  Report Type: 
  Country: None (occurrence: None)
  Receive Date: 20110920
  Receipt Date: 20110916
  Transmission Date: 20111222
  Serious: No
  Sender: FDA-Public Use
  Company Number: US-PFIZER INC-2011220438

PATIENT
  Sex: Male

DRUGS (7)
  1. CREON [Concomitant]
     Dosage: UNK
  2. TAMSULOSIN [Concomitant]
     Dosage: UNK
  3. HUMALOG [Concomitant]
     Dosage: UNK
  4. LISINOPRIL [Concomitant]
     Dosage: UNK
  5. PRILOSEC [Concomitant]
     Dosage: UNK
  6. LANTUS [Concomitant]
     Dosage: UNK
  7. SUTENT [Suspect]
     Indication: RENAL CANCER
     Dosage: 50 MG, 1X/DAY
     Route: 048
     Dates: start: 20110628

REACTIONS (3)
  - FATIGUE [None]
  - FLATULENCE [None]
  - RASH [None]
